FAERS Safety Report 5954462-9 (Version None)
Quarter: 2008Q4

REPORT INFORMATION
  Report Type: 
  Country: None (occurrence: None)
  Receive Date: 20081112
  Receipt Date: 20081104
  Transmission Date: 20090506
  Serious: Yes (Other)
  Sender: FDA-Public Use
  Company Number: 2008SP022513

PATIENT
  Age: 63 Year
  Sex: Female

DRUGS (5)
  1. TEMODAL [Suspect]
     Indication: SUPERFICIAL SPREADING MELANOMA STAGE UNSPECIFIED
     Dosage: 290 MG;QD;PO, 270 MG; ;PO
     Route: 048
     Dates: start: 20040101, end: 20060601
  2. TEMODAL [Suspect]
     Indication: SUPERFICIAL SPREADING MELANOMA STAGE UNSPECIFIED
     Dosage: 290 MG;QD;PO, 270 MG; ;PO
     Route: 048
     Dates: start: 20080301
  3. TAVEGYL [Concomitant]
  4. CORTISONE ACETATE TAB [Concomitant]
  5. IMOGAS [Concomitant]

REACTIONS (4)
  - DRUG HYPERSENSITIVITY [None]
  - HALLUCINATION, AUDITORY [None]
  - MELANOMA RECURRENT [None]
  - PETECHIAE [None]
